FAERS Safety Report 5097672-8 (Version None)
Quarter: 2006Q3

REPORT INFORMATION
  Report Type: 
  Country: None (occurrence: None)
  Receive Date: 20060901
  Receipt Date: 20060822
  Transmission Date: 20061208
  Serious: Yes (Hospitalization, Other)
  Sender: FDA-Public Use
  Company Number: 2006BI006331

PATIENT
  Age: 51 Year
  Sex: Female

DRUGS (2)
  1. AVONEX [Suspect]
     Indication: MULTIPLE SCLEROSIS
     Dosage: 30 UG; QW; IM
     Route: 030
     Dates: start: 20030501, end: 20030801
  2. AVONEX [Suspect]
     Indication: MULTIPLE SCLEROSIS
     Dosage: 30 UG; QW; IM
     Route: 030
     Dates: start: 20030901

REACTIONS (15)
  - ANAL FISTULA [None]
  - BLINDNESS UNILATERAL [None]
  - CONDITION AGGRAVATED [None]
  - CONVULSION [None]
  - GASTROINTESTINAL DISORDER [None]
  - HEADACHE [None]
  - INFECTION [None]
  - MULTIPLE SCLEROSIS [None]
  - ORGAN FAILURE [None]
  - PAIN [None]
  - PITUITARY TUMOUR BENIGN [None]
  - PNEUMONIA [None]
  - POST PROCEDURAL COMPLICATION [None]
  - RENAL FAILURE [None]
  - SURGERY [None]
